FAERS Safety Report 13444666 (Version 1)
Quarter: 2017Q2

REPORT INFORMATION
  Report Type: Spontaneous
  Country: US (occurrence: US)
  Receive Date: 20170414
  Receipt Date: 20170414
  Transmission Date: 20170830
  Serious: Yes (Other)
  Sender: FDA-Public Use
  Company Number: US-SA-2017SA063829

PATIENT
  Sex: Female

DRUGS (1)
  1. PLAVIX [Suspect]
     Active Substance: CLOPIDOGREL BISULFATE
     Indication: CARDIAC DISORDER
     Route: 065
     Dates: start: 2016

REACTIONS (5)
  - Tooth infection [Unknown]
  - Oral pain [Unknown]
  - Gingivitis [Unknown]
  - Feeding disorder [Unknown]
  - Tooth fracture [Unknown]

NARRATIVE: CASE EVENT DATE: 2016
